FAERS Safety Report 8315712-7 (Version None)
Quarter: 2012Q2

REPORT INFORMATION
  Report Type: 
  Country: None (occurrence: None)
  Receive Date: 20120426
  Receipt Date: 20120423
  Transmission Date: 20120825
  Serious: Yes (Other)
  Sender: FDA-Public Use
  Company Number: US-MERCK-1204USA03610

PATIENT

DRUGS (1)
  1. JANUMET [Suspect]
     Route: 048
     Dates: start: 20120201

REACTIONS (2)
  - SUICIDE ATTEMPT [None]
  - OVERDOSE [None]
